FAERS Safety Report 11197349 (Version 1)
Quarter: 2015Q2

REPORT INFORMATION
  Report Type: Spontaneous
  Country: CA (occurrence: CA)
  Receive Date: 20150617
  Receipt Date: 20150617
  Transmission Date: 20150821
  Serious: Yes (Other)
  Sender: FDA-Public Use
  Company Number: CA-GLAXOSMITHKLINE-CA2015085061

PATIENT

DRUGS (1)
  1. NICOTINE. [Suspect]
     Active Substance: NICOTINE
     Indication: SMOKING CESSATION THERAPY
     Dosage: DOSAGE FORM: UNSPECIFIED
     Route: 065

REACTIONS (16)
  - Disturbance in attention [Unknown]
  - Panic attack [Unknown]
  - Flatulence [Unknown]
  - Skin irritation [Unknown]
  - Anxiety [Unknown]
  - Nausea [Unknown]
  - Irritability [Unknown]
  - Headache [Unknown]
  - Somnolence [Unknown]
  - Increased appetite [Unknown]
  - Fatigue [Unknown]
  - Abnormal dreams [Unknown]
  - Depressed mood [Unknown]
  - Dyspepsia [Unknown]
  - Sleep disorder [Unknown]
  - Suicidal ideation [Unknown]
